FAERS Safety Report 25049811 (Version 1)
Quarter: 2025Q1

REPORT INFORMATION
  Report Type: Spontaneous
  Country: US (occurrence: US)
  Receive Date: 20250307
  Receipt Date: 20250307
  Transmission Date: 20250408
  Serious: Yes (Death, Other)
  Sender: RANBAXY
  Company Number: US-SUN PHARMACEUTICAL INDUSTRIES LTD-2025R1-495715

PATIENT
  Age: 66 Year
  Sex: Male

DRUGS (4)
  1. AZITHROMYCIN [Suspect]
     Active Substance: AZITHROMYCIN
     Indication: Acid fast bacilli infection
     Route: 042
  2. TOBRAMYCIN [Suspect]
     Active Substance: TOBRAMYCIN
     Indication: Acid fast bacilli infection
     Route: 065
  3. AMIKACIN [Suspect]
     Active Substance: AMIKACIN
     Indication: Acid fast bacilli infection
     Dosage: UNK, WEEKLY
  4. IMIPENEM [Suspect]
     Active Substance: IMIPENEM
     Indication: Acid fast bacilli infection
     Route: 065

REACTIONS (1)
  - Condition aggravated [Fatal]
